FAERS Safety Report 18636042 (Version 2)
Quarter: 2021Q4

REPORT INFORMATION
  Report Type: Spontaneous
  Country: AU (occurrence: AU)
  Receive Date: 20201218
  Receipt Date: 20211204
  Transmission Date: 20220303
  Serious: Yes (Death, Life-Threatening, Other)
  Sender: FDA-Public Use
  Company Number: AU-009507513-2011AUS004672

PATIENT
  Age: 61 Year
  Sex: Male

DRUGS (1)
  1. KEYTRUDA [Suspect]
     Active Substance: PEMBROLIZUMAB
     Indication: Non-small cell lung cancer
     Dosage: 200 MILLIGRAM, Q3W; CYCLE 1
     Route: 042
     Dates: start: 20201008, end: 20201008

REACTIONS (4)
  - Toxic epidermal necrolysis [Fatal]
  - Lower respiratory tract infection [Recovering/Resolving]
  - Stevens-Johnson syndrome [Unknown]
  - Rash [Recovering/Resolving]

NARRATIVE: CASE EVENT DATE: 20200101
